FAERS Safety Report 24889989 (Version 1)
Quarter: 2025Q1

REPORT INFORMATION
  Report Type: Spontaneous
  Country: NL (occurrence: NL)
  Receive Date: 20250127
  Receipt Date: 20250127
  Transmission Date: 20250409
  Serious: Yes (Hospitalization, Other)
  Sender: CHATTEM
  Company Number: NL-OPELLA-2025OHG002194

PATIENT
  Age: 26 Year
  Sex: Female
  Weight: 75 kg

DRUGS (7)
  1. LEVOCETIRIZINE HYDROCHLORIDE [Suspect]
     Active Substance: LEVOCETIRIZINE HYDROCHLORIDE
     Indication: Urticaria
     Route: 048
     Dates: start: 20180201
  2. METHADONE [Suspect]
     Active Substance: METHADONE HYDROCHLORIDE
     Indication: Pain
     Route: 048
     Dates: start: 20220201
  3. BUPRENORPHINE [Suspect]
     Active Substance: BUPRENORPHINE
     Indication: Pain
     Dosage: 1 PLASTER EVERY 5 DAYS?FORMULATION: PLASTER
     Route: 062
     Dates: start: 20190201
  4. MORPHINE [Suspect]
     Active Substance: MORPHINE
     Indication: Pain
     Dosage: 6 X DAY 2 ML
     Route: 048
     Dates: start: 20240601
  5. MONTELUKAST [Suspect]
     Active Substance: MONTELUKAST
     Indication: Urticaria
     Dosage: 1X PER DAG 1 TABLET
     Route: 048
     Dates: start: 20190201
  6. OMALIZUMAB [Suspect]
     Active Substance: OMALIZUMAB
     Indication: Urticaria
     Dosage: 2 INJECTIONS (150MG EACH) PER 4 WEEKS;
     Dates: start: 20240401
  7. OXYCODONE [Suspect]
     Active Substance: OXYCODONE
     Indication: Pain
     Dosage: X 6 PER DAY 1 1TABLET; ORAL USE
     Route: 048
     Dates: start: 20240401

REACTIONS (3)
  - Foetal death [Unknown]
  - Foetal vascular malperfusion [Unknown]
  - Maternal exposure during pregnancy [Unknown]

NARRATIVE: CASE EVENT DATE: 20241119
